FAERS Safety Report 9303915 (Version 1)
Quarter: 2013Q2

REPORT INFORMATION
  Report Type: Spontaneous
  Country: CN (occurrence: CN)
  Receive Date: 20130522
  Receipt Date: 20130522
  Transmission Date: 20140414
  Serious: Yes (Hospitalization, Other)
  Sender: FDA-Public Use
  Company Number: CN-ASTRAZENECA-2013SE35703

PATIENT
  Age: 625 Month
  Sex: Female
  Weight: 55 kg

DRUGS (1)
  1. ARIMIDEX [Suspect]
     Indication: BREAST CANCER RECURRENT
     Route: 048
     Dates: start: 20111013, end: 20111125

REACTIONS (2)
  - Biliary cirrhosis primary [Recovering/Resolving]
  - Hepatitis [Recovering/Resolving]
